FAERS Safety Report 5397904-2 (Version None)
Quarter: 2007Q3

REPORT INFORMATION
  Report Type: 
  Country: None (occurrence: None)
  Receive Date: 20070723
  Receipt Date: 20070723
  Transmission Date: 20080115
  Serious: No
  Sender: FDA-Public Use
  Company Number: None

PATIENT
  Age: 64 Year
  Sex: Female
  Weight: 77.1115 kg

DRUGS (2)
  1. ZOLPIDEM [Suspect]
     Indication: FIBROMYALGIA
     Dosage: 10 MG AT BEDTIME PO
     Route: 048
     Dates: start: 20070520, end: 20070721
  2. ZOLPIDEM [Suspect]
     Indication: INSOMNIA
     Dosage: 10 MG AT BEDTIME PO
     Route: 048
     Dates: start: 20070520, end: 20070721

REACTIONS (2)
  - DRUG EFFECT DECREASED [None]
  - DRY MOUTH [None]
